FAERS Safety Report 7096689-1 (Version None)
Quarter: 2010Q4

REPORT INFORMATION
  Report Type: 
  Country: None (occurrence: None)
  Receive Date: 20101111
  Receipt Date: 20080314
  Transmission Date: 20110411
  Serious: No
  Sender: FDA-Public Use
  Company Number: US-KINGPHARMUSA00001-K200800327

PATIENT
  Sex: Male

DRUGS (3)
  1. SKELAXIN [Suspect]
     Indication: BACK PAIN
     Dosage: 800 MG, AT BEDTIME
     Route: 048
     Dates: start: 20080311, end: 20080313
  2. REMERON [Concomitant]
  3. XANAX [Concomitant]

REACTIONS (3)
  - DIZZINESS [None]
  - FALL [None]
  - NAUSEA [None]
